FAERS Safety Report 4809773-7 (Version None)
Quarter: 2005Q4

REPORT INFORMATION
  Report Type: 
  Country: None (occurrence: None)
  Receive Date: 20051024
  Receipt Date: 20051013
  Transmission Date: 20060501
  Serious: Yes (Other)
  Sender: FDA-Public Use
  Company Number: 141585USA

PATIENT
  Age: 44 Year
  Sex: Female

DRUGS (1)
  1. COPAXONE [Suspect]
     Indication: MULTIPLE SCLEROSIS
     Dates: start: 20010127, end: 20050312

REACTIONS (9)
  - ERYTHEMA [None]
  - HAEMORRHAGE [None]
  - HYPERSENSITIVITY [None]
  - INJECTION SITE NECROSIS [None]
  - INJECTION SITE REACTION [None]
  - PAIN [None]
  - SCAR [None]
  - VEIN DISORDER [None]
  - WRONG TECHNIQUE IN DRUG USAGE PROCESS [None]
